FAERS Safety Report 21035641 (Version 1)
Quarter: 2022Q3

REPORT INFORMATION
  Report Type: Spontaneous
  Country: US (occurrence: US)
  Receive Date: 20220701
  Receipt Date: 20220701
  Transmission Date: 20221026
  Serious: Yes (Other)
  Sender: FDA-Public Use
  Company Number: US-PFIZER INC-202200916247

PATIENT
  Age: 55 Year
  Sex: Female
  Weight: 101.6 kg

DRUGS (1)
  1. PAXLOVID [Suspect]
     Active Substance: NIRMATRELVIR\RITONAVIR
     Indication: COVID-19 immunisation
     Dosage: UNK UNK, 2X/DAY (2 NIRMATRELVIR OF 1 RITONAVIR TWICE DAILY)
     Dates: start: 20220620, end: 20220622

REACTIONS (7)
  - Anaphylactic reaction [Recovering/Resolving]
  - Throat tightness [Unknown]
  - Aphonia [Recovering/Resolving]
  - Cough [Unknown]
  - Taste disorder [Unknown]
  - Product taste abnormal [Unknown]
  - Incorrect dose administered [Unknown]

NARRATIVE: CASE EVENT DATE: 20220621
